FAERS Safety Report 11175785 (Version 1)
Quarter: 2015Q2

REPORT INFORMATION
  Report Type: Spontaneous
  Country: US (occurrence: US)
  Receive Date: 20150609
  Receipt Date: 20150609
  Transmission Date: 20150821
  Serious: No
  Sender: FDA-Public Use
  Company Number: US-PFIZER INC-2015189100

PATIENT
  Age: 51 Year
  Sex: Male
  Weight: 107 kg

DRUGS (12)
  1. NEURONTIN [Concomitant]
     Active Substance: GABAPENTIN
     Indication: ROTATOR CUFF SYNDROME
  2. NORCO [Concomitant]
     Active Substance: ACETAMINOPHEN\HYDROCODONE BITARTRATE
     Indication: PAIN
     Dosage: 7.5-325 MG, EVERY 6 HOURS AS NEEDED
  3. OMEPRAZOLE. [Concomitant]
     Active Substance: OMEPRAZOLE
     Indication: GASTROOESOPHAGEAL REFLUX DISEASE
     Dosage: 20 MG, 2 TABLETS EVERY MORNING
  4. TEGRETOL [Concomitant]
     Active Substance: CARBAMAZEPINE
     Indication: BIPOLAR DISORDER
  5. FLEXERIL [Concomitant]
     Active Substance: CYCLOBENZAPRINE HYDROCHLORIDE
     Indication: TRIGEMINAL NEURALGIA
     Dosage: 10 MG, ONE TABLET AT BEDTIME AND ONE AS NEEDED, BUT NO MORE THAN 2 A DAY
  6. NEURONTIN [Concomitant]
     Active Substance: GABAPENTIN
     Indication: ROAD TRAFFIC ACCIDENT
  7. TEGRETOL [Concomitant]
     Active Substance: CARBAMAZEPINE
     Indication: TRIGEMINAL NEURALGIA
  8. VIAGRA [Suspect]
     Active Substance: SILDENAFIL CITRATE
     Indication: ERECTILE DYSFUNCTION
     Dosage: 50 MG, AS NEEDED
     Dates: start: 2003
  9. VIAGRA [Suspect]
     Active Substance: SILDENAFIL CITRATE
     Dosage: 100 MG, UNK
  10. PEPCID COMPLETE [Concomitant]
     Active Substance: CALCIUM CARBONATE\FAMOTIDINE\MAGNESIUM HYDROXIDE
     Dosage: UNK
  11. NEURONTIN [Concomitant]
     Active Substance: GABAPENTIN
     Indication: INTERVERTEBRAL DISC PROTRUSION
     Dosage: 300 MG, ONE CAPSULE 3X/DAY
  12. TEGRETOL [Concomitant]
     Active Substance: CARBAMAZEPINE
     Indication: PAIN
     Dosage: 100 MG, ONE TABLET EVERY OTHER DAY ALTERNATING WITH TWO TABLETS EVERY OTHER DAY

REACTIONS (6)
  - Vomiting [Unknown]
  - Dyspepsia [Not Recovered/Not Resolved]
  - Headache [Unknown]
  - Drug ineffective [Unknown]
  - Influenza [Unknown]
  - Diarrhoea [Unknown]

NARRATIVE: CASE EVENT DATE: 2015
